APPROVED DRUG PRODUCT: PREMARIN
Active Ingredient: ESTROGENS, CONJUGATED
Strength: 0.625MG/GM
Dosage Form/Route: CREAM;TOPICAL, VAGINAL
Application: N020216 | Product #001
Applicant: WYETH PHARMACEUTICALS LLC
Approved: Approved Prior to Jan 1, 1982 | RLD: Yes | RS: Yes | Type: RX